FAERS Safety Report 7642343-4 (Version None)
Quarter: 2011Q3

REPORT INFORMATION
  Report Type: 
  Country: None (occurrence: None)
  Receive Date: 20110728
  Receipt Date: 20110719
  Transmission Date: 20111222
  Serious: Yes (Other)
  Sender: FDA-Public Use
  Company Number: JP-PFIZER INC-2011165592

PATIENT
  Age: 58 Year
  Sex: Female

DRUGS (4)
  1. OXALIPLATIN [Suspect]
     Indication: ADENOCARCINOMA
  2. LEUCOVORIN CALCIUM [Suspect]
     Indication: ADENOCARCINOMA
  3. FLUOROURACIL [Suspect]
     Indication: ADENOCARCINOMA
  4. IRINOTECAN HCL [Suspect]
     Indication: ADENOCARCINOMA

REACTIONS (2)
  - GASTROINTESTINAL TOXICITY [None]
  - LEUKOPENIA [None]
